FAERS Safety Report 8476335-2 (Version None)
Quarter: 2012Q2

REPORT INFORMATION
  Report Type: 
  Country: None (occurrence: None)
  Receive Date: 20120619
  Receipt Date: 20120611
  Transmission Date: 20120825
  Serious: Yes (Death, Hospitalization)
  Sender: FDA-Public Use
  Company Number: 2012SP032382

PATIENT
  Age: 40 Year
  Sex: Female

DRUGS (8)
  1. LAMOTRIGINE [Suspect]
     Indication: PSYCHOTIC DISORDER
     Dosage: 100 MG;QD;PO
     Route: 048
  2. MIRTAZAPINE [Suspect]
     Indication: PSYCHOTIC DISORDER
     Dosage: 15 MG;QD;PO
     Route: 048
  3. ALPRAZOLAM [Concomitant]
  4. FERROUS SULFATE TAB [Concomitant]
  5. AMOXICILLIN [Concomitant]
  6. VENLAFAXINE HCL [Suspect]
     Indication: PSYCHOTIC DISORDER
     Dosage: 75 MG;QD;PO
     Route: 048
  7. FLUCONAZOLE [Concomitant]
  8. QUETIAPINE FUMARATE [Suspect]
     Indication: PSYCHOTIC DISORDER
     Dosage: 300 MG;QD;PO
     Route: 048

REACTIONS (21)
  - ORAL CANDIDIASIS [None]
  - CARDIAC ARREST [None]
  - BLOOD PH DECREASED [None]
  - SEPTIC SHOCK [None]
  - RENAL FAILURE ACUTE [None]
  - PHARYNGITIS [None]
  - CHILLS [None]
  - PRODUCTIVE COUGH [None]
  - LUNG NEOPLASM [None]
  - HYPOTENSION [None]
  - LUNG CONSOLIDATION [None]
  - ALANINE AMINOTRANSFERASE INCREASED [None]
  - AGRANULOCYTOSIS [None]
  - MULTI-ORGAN DISORDER [None]
  - CELLULITIS ORBITAL [None]
  - FEBRILE NEUTROPENIA [None]
  - CONVULSION [None]
  - HAEMODIALYSIS [None]
  - ENTEROCOCCUS TEST POSITIVE [None]
  - ASPERGILLUS TEST POSITIVE [None]
  - ASPARTATE AMINOTRANSFERASE INCREASED [None]
